FAERS Safety Report 13682318 (Version 1)
Quarter: 2017Q2

REPORT INFORMATION
  Report Type: Report from Study
  Country: US (occurrence: US)
  Receive Date: 20170623
  Receipt Date: 20170623
  Transmission Date: 20170830
  Serious: Yes (Hospitalization)
  Sender: FDA-Public Use
  Company Number: US-MALLINCKRODT-T201601651

PATIENT
  Age: 46 Year
  Sex: Male
  Weight: 134 kg

DRUGS (51)
  1. CYMBALTA [Concomitant]
     Active Substance: DULOXETINE HYDROCHLORIDE
     Dosage: 60MG QD
  2. CLEOCIN-T [Concomitant]
     Dosage: QD PRN
     Route: 061
  3. VALTREX [Concomitant]
     Active Substance: VALACYCLOVIR HYDROCHLORIDE
     Dosage: 1GM BID
     Route: 048
  4. TRAZODONE [Concomitant]
     Active Substance: TRAZODONE HYDROCHLORIDE
     Dosage: 150MG: 2 HS
     Route: 048
  5. TRAMADOL. [Concomitant]
     Active Substance: TRAMADOL
     Dosage: 2 TABLETS Q6 HOURS
     Route: 048
  6. H.P. ACTHAR [Suspect]
     Active Substance: CORTICOTROPIN
     Dosage: 80 UNITS DAILY FOR 5 DAYS
     Route: 058
     Dates: start: 20140428, end: 20140502
  7. PREDNISONE. [Concomitant]
     Active Substance: PREDNISONE
     Dosage: 1MG: 4 TABLETS QD
     Route: 048
  8. PREDNISONE. [Concomitant]
     Active Substance: PREDNISONE
     Dosage: 10MG: 2 TABLETS QD
     Route: 048
  9. LIDOCAINE HCL [Concomitant]
     Active Substance: LIDOCAINE HYDROCHLORIDE
     Dosage: 2.5%, QD, PRN
  10. TEMAZEPAM. [Concomitant]
     Active Substance: TEMAZEPAM
     Dosage: 30MG HS
     Route: 048
  11. IMITREX [Concomitant]
     Active Substance: SUMATRIPTAN SUCCINATE
     Dosage: PRN
     Route: 048
  12. METHOTREXATE. [Concomitant]
     Active Substance: METHOTREXATE
     Indication: SYSTEMIC LUPUS ERYTHEMATOSUS
     Dosage: 2.5MG: 15MG WEEKLY
     Route: 048
     Dates: start: 20150115
  13. LEVITRA [Concomitant]
     Active Substance: VARDENAFIL HYDROCHLORIDE TRIHYDRATE
     Dosage: PRN
     Route: 048
  14. GAMUNEX [Concomitant]
     Active Substance: HUMAN IMMUNOGLOBULIN G
     Dosage: 35 GRAMS EVERY FOUR WEEKS
  15. ZYRTEC [Concomitant]
     Active Substance: CETIRIZINE HYDROCHLORIDE
     Dosage: 10MG BID
  16. MAGIC MOUTHWASH [Concomitant]
     Active Substance: DIPHENHYDRAMINE HYDROCHLORIDE\LIDOCAINE HYDROCHLORIDE\NYSTATIN
     Dosage: 10-15ML FOUR TIMES DAILY
     Route: 048
  17. VOLTAREN [Concomitant]
     Active Substance: DICLOFENAC SODIUM
     Dosage: 4GRAMS QID PRN
     Route: 062
     Dates: start: 20120104
  18. RITALIN [Concomitant]
     Active Substance: METHYLPHENIDATE HYDROCHLORIDE
     Dosage: 20MG TID
     Route: 048
  19. TESTOSTERONE CYPIONATE. [Concomitant]
     Active Substance: TESTOSTERONE CYPIONATE
     Dosage: EVERY TWO WEEKS
     Route: 030
  20. BYSTOLIC [Concomitant]
     Active Substance: NEBIVOLOL HYDROCHLORIDE
     Dosage: 10MG QD
     Route: 048
  21. OMEPRAZOLE. [Concomitant]
     Active Substance: OMEPRAZOLE
     Dosage: 20MG QD (ON HOLD)
     Route: 048
  22. LEVOXYL [Concomitant]
     Active Substance: LEVOTHYROXINE SODIUM
     Dosage: 100MCG Q AM
     Route: 048
  23. MS CONTIN [Concomitant]
     Active Substance: MORPHINE SULFATE
     Dosage: 15MG Q12HOURS
     Route: 048
     Dates: start: 20150505
  24. PREDNISONE. [Concomitant]
     Active Substance: PREDNISONE
     Dosage: 2.5MG QD
     Route: 048
     Dates: start: 20140616
  25. CELLCEPT [Concomitant]
     Active Substance: MYCOPHENOLATE MOFETIL\MYCOPHENOLATE MOFETIL HYDROCHLORIDE
     Indication: SYSTEMIC LUPUS ERYTHEMATOSUS
     Dosage: 3X500MG TWICE DAILY
     Route: 048
     Dates: start: 20150331
  26. ZORVOLEX [Concomitant]
     Active Substance: DICLOFENAC
     Dosage: 35MG TID
     Route: 048
     Dates: start: 20150325
  27. CYMBALTA [Concomitant]
     Active Substance: DULOXETINE HYDROCHLORIDE
     Dosage: 30MG QD
  28. XARELTO [Concomitant]
     Active Substance: RIVAROXABAN
     Dosage: 20MG QD
     Route: 048
  29. ZOFRAN [Concomitant]
     Active Substance: ONDANSETRON HYDROCHLORIDE
     Dosage: 4MG PRN
     Route: 048
  30. ASTELIN [Concomitant]
     Active Substance: AZELASTINE HYDROCHLORIDE
     Dosage: BID
     Route: 045
  31. SINGULAIR [Concomitant]
     Active Substance: MONTELUKAST SODIUM
     Dosage: 10MG Q AM
     Route: 048
  32. PLAQUENIL [Concomitant]
     Active Substance: HYDROXYCHLOROQUINE SULFATE
     Dosage: 200MG BID
     Route: 048
  33. FLEXERIL [Concomitant]
     Active Substance: CYCLOBENZAPRINE HYDROCHLORIDE
     Dosage: 10MG HS PRN
     Route: 048
  34. H.P. ACTHAR [Suspect]
     Active Substance: CORTICOTROPIN
     Indication: SYSTEMIC LUPUS ERYTHEMATOSUS
     Dosage: 80 UNITS TWICE WEEKLY
     Route: 058
  35. PREDNISONE. [Concomitant]
     Active Substance: PREDNISONE
     Dosage: 5MG QD
     Route: 048
  36. VITAMIN B COMPLEX [Concomitant]
     Active Substance: CYANOCOBALAMIN\DEXPANTHENOL\NIACINAMIDE\PYRIDOXINE HYDROCHLORIDE\RIBOFLAVIN 5^-PHOSPHATE SODIUM\THIAMINE HYDROCHLORIDE\VITAMIN B COMPLEX
     Dosage: QD
     Route: 048
  37. COMPAZINE [Concomitant]
     Active Substance: PROCHLORPERAZINE MALEATE
     Dosage: 10MG Q6H PRN
     Route: 048
  38. CRESTOR [Concomitant]
     Active Substance: ROSUVASTATIN CALCIUM
     Dosage: 40MG Q AM
     Route: 048
  39. FOLIC ACID. [Concomitant]
     Active Substance: FOLIC ACID
     Dosage: 1MG QD
     Route: 048
  40. SUSTIVA [Concomitant]
     Active Substance: EFAVIRENZ
     Dosage: 600MG HS
     Route: 048
  41. PREDNISONE. [Concomitant]
     Active Substance: PREDNISONE
     Dosage: 20MG: 2 TABLETS QD
     Route: 048
  42. KLOR-CON [Concomitant]
     Active Substance: POTASSIUM CHLORIDE
     Dosage: 20MEQ DAILY
     Route: 048
  43. BACTROBAN [Concomitant]
     Active Substance: MUPIROCIN\MUPIROCIN CALCIUM
     Dosage: QD PRN
     Route: 061
  44. KLONOPIN [Concomitant]
     Active Substance: CLONAZEPAM
     Dosage: 1MG Q8H PRN
     Route: 048
  45. TRIUMEQ [Concomitant]
     Active Substance: ABACAVIR SULFATE\DOLUTEGRAVIR SODIUM\LAMIVUDINE
     Dosage: QD
  46. LIDOCAINE HCL [Concomitant]
     Active Substance: LIDOCAINE HYDROCHLORIDE
     Dosage: 5 %, PRN
     Route: 061
  47. BENADRYL ALLERGY [Concomitant]
     Active Substance: DIPHENHYDRAMINE HYDROCHLORIDE
     Dosage: 25MG PRN
     Route: 048
  48. DESONIDE. [Concomitant]
     Active Substance: DESONIDE
     Dosage: PRN
     Route: 061
  49. CALCITRIOL. [Concomitant]
     Active Substance: CALCITRIOL
     Dosage: 0.5MCG QD
     Route: 048
  50. PERIDEX [Concomitant]
     Active Substance: CHLORHEXIDINE GLUCONATE
     Dosage: BID
     Route: 048
  51. FLONASE [Concomitant]
     Active Substance: FLUTICASONE PROPIONATE
     Dosage: 1 SPRAY IEN QD
     Route: 045

REACTIONS (1)
  - Pneumonia [Recovered/Resolved]

NARRATIVE: CASE EVENT DATE: 20150426
